FAERS Safety Report 6322423-6 (Version None)
Quarter: 2009Q3

REPORT INFORMATION
  Report Type: 
  Country: None (occurrence: None)
  Receive Date: 20090824
  Receipt Date: 20090210
  Transmission Date: 20100115
  Serious: No
  Sender: FDA-Public Use
  Company Number: US-ABBOTT-09P-163-0502959-00

PATIENT
  Sex: Female
  Weight: 111.23 kg

DRUGS (1)
  1. NIASPAN [Suspect]
     Indication: BLOOD TRIGLYCERIDES
     Route: 048
     Dates: start: 20090204

REACTIONS (2)
  - NASOPHARYNGITIS [None]
  - UPPER RESPIRATORY TRACT CONGESTION [None]
